FAERS Safety Report 7810467-4 (Version None)
Quarter: 2011Q4

REPORT INFORMATION
  Report Type: 
  Country: None (occurrence: None)
  Receive Date: 20111012
  Receipt Date: 20111003
  Transmission Date: 20120403
  Serious: Yes (Hospitalization, Other)
  Sender: FDA-Public Use
  Company Number: AT-ROCHE-795057

PATIENT
  Sex: Male
  Weight: 68 kg

DRUGS (4)
  1. COPEGUS [Suspect]
     Route: 048
  2. TMC435 (NS3/4A PROTEASE INHIBITOR) [Suspect]
     Indication: HEPATITIS C
     Route: 048
     Dates: start: 20110411, end: 20110523
  3. COPEGUS [Suspect]
     Indication: HEPATITIS C
     Route: 048
     Dates: start: 20110411, end: 20110619
  4. PEGINTERFERON ALFA-2A [Suspect]
     Indication: HEPATITIS C
     Route: 058

REACTIONS (4)
  - DEHYDRATION [None]
  - LOSS OF CONSCIOUSNESS [None]
  - MUSCLE SPASMS [None]
  - VOMITING [None]
